FAERS Safety Report 5619488-3 (Version None)
Quarter: 2008Q1

REPORT INFORMATION
  Report Type: 
  Country: None (occurrence: None)
  Receive Date: 20080114
  Receipt Date: 20071012
  Transmission Date: 20080703
  Serious: Yes (Other)
  Sender: FDA-Public Use
  Company Number: FEI2007-1706

PATIENT
  Age: 28 Year
  Sex: Female
  Weight: 77.1115 kg

DRUGS (3)
  1. PARAGARD T 380A [Suspect]
     Indication: CONTRACEPTION
     Dosage: INTRA-UTERINE ; INTRA-UTERINE
     Route: 015
     Dates: start: 19990601, end: 19990701
  2. PARAGARD T 380A [Suspect]
     Indication: CONTRACEPTION
     Dosage: INTRA-UTERINE ; INTRA-UTERINE
     Route: 015
     Dates: start: 19990701, end: 20070727
  3. ALLEGRA [Concomitant]

REACTIONS (4)
  - INTRA-UTERINE CONTRACEPTIVE DEVICE EXPELLED [None]
  - IUCD COMPLICATION [None]
  - IUD MIGRATION [None]
  - MENORRHAGIA [None]
